FAERS Safety Report 7323330-2 (Version None)
Quarter: 2011Q1

REPORT INFORMATION
  Report Type: 
  Country: None (occurrence: None)
  Receive Date: 20110301
  Receipt Date: 20110222
  Transmission Date: 20110831
  Serious: Yes (Life-Threatening, Other)
  Sender: FDA-Public Use
  Company Number: PL-TEVA-265573ISR

PATIENT
  Sex: Female
  Weight: 74.5 kg

DRUGS (7)
  1. CODEINE [Concomitant]
     Route: 048
     Dates: start: 20110120, end: 20110120
  2. OMEPRAZOLE [Concomitant]
     Route: 048
  3. ONDANSERTRON HCL [Concomitant]
     Route: 042
     Dates: start: 20110120, end: 20110120
  4. METOCLOPRAMIDE HCL [Concomitant]
     Route: 042
     Dates: start: 20110120, end: 20110120
  5. PREDNISONE ACETATE [Concomitant]
     Route: 048
  6. DACARBAZINE [Suspect]
     Indication: MALIGNANT MELANOMA
     Route: 042
     Dates: start: 20110120, end: 20110120
  7. DEXAMETHASONE SODIUM PHOSPHATE [Concomitant]
     Route: 042
     Dates: start: 20110120, end: 20110120

REACTIONS (5)
  - TACHYCARDIA [None]
  - TACHYPNOEA [None]
  - DYSPNOEA [None]
  - CHILLS [None]
  - HYPERTENSION [None]
